FAERS Safety Report 25493752 (Version 1)
Quarter: 2025Q2

REPORT INFORMATION
  Report Type: Spontaneous
  Country: US (occurrence: None)
  Receive Date: 20250627
  Receipt Date: 20250627
  Transmission Date: 20250716
  Serious: No
  Sender: FDA-CTU
  Company Number: None

PATIENT
  Age: 29 Year
  Sex: Male
  Weight: 88.2 kg

DRUGS (1)
  1. PREDNISONE [Suspect]
     Active Substance: PREDNISONE
     Indication: Barotitis media
     Route: 048
     Dates: start: 20250626

REACTIONS (4)
  - Amnesia [None]
  - Confusional state [None]
  - Fatigue [None]
  - Mood swings [None]

NARRATIVE: CASE EVENT DATE: 20250627
